FAERS Safety Report 6750509-0 (Version None)
Quarter: 2010Q2

REPORT INFORMATION
  Report Type: 
  Country: None (occurrence: None)
  Receive Date: 20100527
  Receipt Date: 20100513
  Transmission Date: 20101027
  Serious: Yes (Death, Life-Threatening)
  Sender: FDA-Public Use
  Company Number: 005708

PATIENT
  Age: 7 Month
  Sex: Male

DRUGS (10)
  1. BUSULFEX [Suspect]
     Indication: STEM CELL TRANSPLANT
     Dosage: MG
     Route: 042
     Dates: start: 20090512, end: 20090514
  2. CYTARABINE [Suspect]
     Indication: IMMUNOSUPPRESSION
     Dosage: 5 MG, DAILY DOSE; 4 MG, DAILY DOSE;INTRAVENOUS
     Route: 042
     Dates: start: 20090626
  3. CYTARABINE [Suspect]
     Indication: IMMUNOSUPPRESSION
     Dosage: 5 MG, DAILY DOSE; 4 MG, DAILY DOSE;INTRAVENOUS
     Route: 042
  4. ETOPOSIDE [Suspect]
     Dosage: 6 MG, DAILY DOSE;INTRAVENOUS; 8 MG, DAILY DOSE;INTRAVENOUS; 200 MG, DAILY DOSE; INTRAVENOUS; 20 MG,
     Route: 042
  5. ETOPOSIDE [Suspect]
     Dosage: 6 MG, DAILY DOSE;INTRAVENOUS; 8 MG, DAILY DOSE;INTRAVENOUS; 200 MG, DAILY DOSE; INTRAVENOUS; 20 MG,
     Route: 042
  6. ETOPOSIDE [Suspect]
     Dosage: 6 MG, DAILY DOSE;INTRAVENOUS; 8 MG, DAILY DOSE;INTRAVENOUS; 200 MG, DAILY DOSE; INTRAVENOUS; 20 MG,
     Route: 042
  7. ETOPOSIDE [Suspect]
     Dosage: 6 MG, DAILY DOSE;INTRAVENOUS; 8 MG, DAILY DOSE;INTRAVENOUS; 200 MG, DAILY DOSE; INTRAVENOUS; 20 MG,
     Route: 042
     Dates: start: 20090426
  8. FLUDARABINE PHOSPHATE [Suspect]
     Indication: STEM CELL TRANSPLANT
     Dates: start: 20090214, end: 20090218
  9. ENDOXAN NET (CYCLOPHOSPHAMIDE) [Suspect]
     Indication: STEM CELL TRANSPLANT
     Dates: start: 20090215, end: 20090218
  10. THYMOGLOBULIN [Suspect]
     Indication: STEM CELL TRANSPLANT
     Dosage: INTRAVENOUS
     Route: 042
     Dates: start: 20090217, end: 20090218

REACTIONS (9)
  - CAPILLARY LEAK SYNDROME [None]
  - NEUTROPENIA [None]
  - OEDEMA [None]
  - OXYGEN SATURATION DECREASED [None]
  - PULMONARY HAEMORRHAGE [None]
  - PYREXIA [None]
  - RASH [None]
  - SHOCK [None]
  - TACHYPNOEA [None]
